FAERS Safety Report 6503991-8 (Version None)
Quarter: 2009Q4

REPORT INFORMATION
  Report Type: 
  Country: None (occurrence: None)
  Receive Date: 20091215
  Receipt Date: 20091129
  Transmission Date: 20100525
  Serious: Yes (Life-Threatening, Hospitalization)
  Sender: FDA-Public Use
  Company Number: GB-DEXPHARM-20090863

PATIENT
  Age: 76 Year
  Sex: Female

DRUGS (7)
  1. CHLORHEXIDINE GLUCONATE [Suspect]
     Dosage: TOPICAL
     Route: 061
     Dates: start: 20090511, end: 20090511
  2. FENTANYL-100 [Suspect]
     Indication: ANAESTHESIA
     Dosage: 50 ?G MICROGRAM(S) INTRAVENOUS (NOT OTHERWISE SPECIFIED)
     Route: 042
  3. MIDAZOLAM HCL [Suspect]
     Indication: ANAESTHESIA
     Dosage: 2 MG MILLGRAM(S) INTRAVENOUS (NOT OTHERWISE SPECIFIED)
     Route: 042
     Dates: start: 20090511, end: 20090511
  4. PROPOFOL [Suspect]
     Indication: ANAESTHESIA
     Dosage: 100 MG MILLGRAM(S) INTRAVENOUS (NOT OTHERWISE SPECIFIED)
     Route: 042
     Dates: start: 20090511, end: 20090511
  5. ONDANSTERON [Suspect]
     Indication: ANAESTHESIA
     Dosage: 4 MG MILLGRAM(S) INTRAVENOUS (NOT OTHERWISE SPECIFIED)
     Route: 042
     Dates: start: 20090511, end: 20090511
  6. VECURONIUM BROMIDE [Suspect]
     Dosage: 7 MG MILLGRAM(S) INTRAVENOUS (NOT OTHERWISE SPECIFIED)
     Route: 042
     Dates: start: 20090511, end: 20090511
  7. BETAHISTINE [Concomitant]

REACTIONS (4)
  - DRUG HYPERSENSITIVITY [None]
  - HYPOTENSION [None]
  - TRYPTASE INCREASED [None]
  - URTICARIA [None]
